FAERS Safety Report 5242407-9 (Version None)
Quarter: 2007Q1

REPORT INFORMATION
  Report Type: 
  Country: None (occurrence: None)
  Receive Date: 20070221
  Receipt Date: 20070206
  Transmission Date: 20070707
  Serious: Yes (Hospitalization)
  Sender: FDA-Public Use
  Company Number: US-BRISTOL-MYERS SQUIBB COMPANY-13671508

PATIENT
  Age: 61 Year
  Sex: Male

DRUGS (4)
  1. NADOLOL [Suspect]
  2. DILTIAZEM HCL [Suspect]
  3. IRBESARTAN [Suspect]
  4. HYDROCHLOROTHIAZIDE [Concomitant]

REACTIONS (9)
  - BLOOD CREATININE INCREASED [None]
  - BLOOD UREA INCREASED [None]
  - DISORIENTATION [None]
  - HAEMATOCRIT DECREASED [None]
  - HAEMOGLOBIN DECREASED [None]
  - HYPOTENSION [None]
  - LETHARGY [None]
  - NODAL ARRHYTHMIA [None]
  - SINUS ARREST [None]
